FAERS Safety Report 14963585 (Version 5)
Quarter: 2018Q4

REPORT INFORMATION
  Report Type: Spontaneous
  Country: JP (occurrence: JP)
  Receive Date: 20180601
  Receipt Date: 20181128
  Transmission Date: 20190204
  Serious: Yes (Other)
  Sender: FDA-Public Use
  Company Number: JP-009507513-1805JPN002497J

PATIENT
  Age: 70 Year
  Sex: Male
  Weight: 56 kg

DRUGS (12)
  1. INSULIN GLARGINE(GENETICAL RECOMBINATION) [Suspect]
     Active Substance: INSULIN GLARGINE
     Dosage: UNK
     Route: 065
     Dates: start: 20180502
  2. FAMOTIDINE. [Concomitant]
     Active Substance: FAMOTIDINE
     Indication: CHRONIC GASTRITIS
     Dosage: 1 DF, QD
     Route: 048
     Dates: start: 20161221
  3. AIMIX [Concomitant]
     Active Substance: AMLODIPINE BESYLATE\IRBESARTAN
     Indication: HYPERTENSION
     Dosage: 1 DF, QD
     Route: 048
     Dates: start: 20170726, end: 20180605
  4. SPIOLTO RESPIMAT [Concomitant]
     Active Substance: OLODATEROL HYDROCHLORIDE\TIOTROPIUM BROMIDE MONOHYDRATE
     Indication: CHRONIC OBSTRUCTIVE PULMONARY DISEASE
     Dosage: 2 IU, QD
     Route: 048
     Dates: start: 20171227
  5. KEYTRUDA [Suspect]
     Active Substance: PEMBROLIZUMAB
     Indication: LUNG ADENOCARCINOMA STAGE I
     Dosage: 200 MG, Q3W
     Route: 041
     Dates: start: 20180117, end: 20180305
  6. SENEGA [Concomitant]
     Indication: ANTITUSSIVE THERAPY
     Dosage: 7 ML, TID
     Route: 048
     Dates: start: 20171206, end: 20180501
  7. MIGLITOL. [Suspect]
     Active Substance: MIGLITOL
     Dosage: UNK
     Route: 048
  8. SENNARIDE [Concomitant]
     Active Substance: SENNOSIDES A AND B
     Indication: CONSTIPATION
     Dosage: 24 MG, QD
     Route: 048
     Dates: start: 20170405
  9. SALIPARA [Concomitant]
     Indication: ANTITUSSIVE THERAPY
     Dosage: 7 ML, TID
     Route: 048
     Dates: start: 20171206, end: 20180501
  10. EBRANTIL [Concomitant]
     Active Substance: URAPIDIL
     Indication: BENIGN PROSTATIC HYPERPLASIA
     Dosage: 15 MG, BID
     Route: 048
     Dates: start: 20170107
  11. APRICOT KERNEL WATER [Concomitant]
     Active Substance: HERBALS
     Indication: ANTITUSSIVE THERAPY
     Dosage: 7 ML, TID
     Route: 048
     Dates: start: 20171206, end: 20180501
  12. MERCAZOLE [Suspect]
     Active Substance: CARBIMAZOLE
     Indication: HYPERTHYROIDISM
     Dosage: UNK
     Route: 048
     Dates: start: 20180402

REACTIONS (4)
  - Hyperthyroidism [Recovered/Resolved]
  - Hepatic function abnormal [Recovering/Resolving]
  - Type 1 diabetes mellitus [Recovering/Resolving]
  - Hypothyroidism [Not Recovered/Not Resolved]

NARRATIVE: CASE EVENT DATE: 20180402
